FAERS Safety Report 19159670 (Version 5)
Quarter: 2022Q1

REPORT INFORMATION
  Report Type: Spontaneous
  Country: CA (occurrence: CA)
  Receive Date: 20210420
  Receipt Date: 20220111
  Transmission Date: 20220423
  Serious: Yes (Other)
  Sender: FDA-Public Use
  Company Number: CA-PFIZER INC-2020091121

PATIENT
  Age: 54 Year
  Sex: Male

DRUGS (2)
  1. INLYTA [Suspect]
     Active Substance: AXITINIB
     Indication: Papillary renal cell carcinoma
     Dosage: 5 MG, 2X/DAY
     Route: 048
     Dates: start: 20200310
  2. KEYTRUDA [Concomitant]
     Active Substance: PEMBROLIZUMAB
     Dosage: UNK
     Dates: start: 20200310

REACTIONS (10)
  - Ascites [Recovering/Resolving]
  - Neoplasm progression [Unknown]
  - Off label use [Unknown]
  - Weight decreased [Unknown]
  - Body surface area decreased [Unknown]
  - Peritoneal disorder [Recovering/Resolving]
  - Pneumonitis [Recovered/Resolved]
  - Decreased appetite [Unknown]
  - Nausea [Unknown]
  - Respiratory disorder [Recovered/Resolved]
